FAERS Safety Report 5818915-6 (Version None)
Quarter: 2008Q3

REPORT INFORMATION
  Report Type: 
  Country: None (occurrence: None)
  Receive Date: 20080721
  Receipt Date: 20080721
  Transmission Date: 20090109
  Serious: Yes (Hospitalization)
  Sender: FDA-Public Use
  Company Number: None

PATIENT
  Sex: Female
  Weight: 54.6 kg

DRUGS (12)
  1. CARBOPLATIN [Suspect]
     Dosage: 614 MG
     Dates: end: 20080612
  2. TAXOL [Suspect]
     Dosage: 278 MG
     Dates: end: 20080612
  3. ATIVAN [Concomitant]
  4. EFFEXOR [Concomitant]
  5. ENOXAPARIN SODIUM [Concomitant]
  6. LABETALOL HCL [Concomitant]
  7. LISINOPRIL [Concomitant]
  8. LOVENOX [Concomitant]
  9. PERCOCET [Concomitant]
  10. SIMVASTATIN [Concomitant]
  11. SODIUM/POTASSIUM PHOSPHATE [Concomitant]
  12. ZOFRAN [Concomitant]

REACTIONS (29)
  - ANAEMIA [None]
  - ATELECTASIS [None]
  - BLOOD ALBUMIN DECREASED [None]
  - BLOOD CHLORIDE DECREASED [None]
  - BLOOD CREATININE DECREASED [None]
  - BLOOD POTASSIUM DECREASED [None]
  - BLOOD UREA DECREASED [None]
  - CREPITATIONS [None]
  - DEHYDRATION [None]
  - DIARRHOEA [None]
  - DISCOMFORT [None]
  - ELECTROCARDIOGRAM T WAVE ABNORMAL [None]
  - HYPERTENSION [None]
  - HYPOCALCAEMIA [None]
  - HYPONATRAEMIA [None]
  - HYPOPHOSPHATAEMIA [None]
  - HYPOXIA [None]
  - INAPPROPRIATE ANTIDIURETIC HORMONE SECRETION [None]
  - ISCHAEMIA [None]
  - NAUSEA [None]
  - NEUTROPHIL COUNT INCREASED [None]
  - PAIN IN EXTREMITY [None]
  - PCO2 INCREASED [None]
  - PLATELET COUNT INCREASED [None]
  - PLEURAL EFFUSION [None]
  - PROTEIN TOTAL DECREASED [None]
  - SINUS TACHYCARDIA [None]
  - VOMITING [None]
  - WHITE BLOOD CELL COUNT DECREASED [None]
